FAERS Safety Report 5635952-5 (Version None)
Quarter: 2008Q1

REPORT INFORMATION
  Report Type: 
  Country: None (occurrence: None)
  Receive Date: 20080224
  Receipt Date: 20080218
  Transmission Date: 20080703
  Serious: Yes (Other)
  Sender: FDA-Public Use
  Company Number: PHHY2008JP01460

PATIENT
  Age: 27 Year
  Sex: Male

DRUGS (6)
  1. STEROIDS NOS [Concomitant]
     Dosage: PULSE THERAPY
  2. CYCLOSPORINE [Suspect]
     Indication: RENAL TRANSPLANT
     Dosage: 250 MG /DAY
     Dates: end: 20070824
  3. BASILIXIMAB [Concomitant]
     Indication: RENAL TRANSPLANT
     Dosage: 20MG, UNK
     Route: 042
  4. CELLCEPT [Concomitant]
  5. METHYLPREDNISOLONE [Suspect]
     Indication: RENAL TRANSPLANT
     Dosage: 4 MG/DAY
  6. METHYLPREDNISOLONE [Suspect]
     Dosage: 30 MG/DAY

REACTIONS (15)
  - ABDOMINAL PAIN UPPER [None]
  - ANAEMIA [None]
  - BLOOD CREATINE PHOSPHOKINASE INCREASED [None]
  - BLOOD CREATININE INCREASED [None]
  - DERMATOMYOSITIS [None]
  - HAEMATURIA [None]
  - HAEMODIALYSIS [None]
  - KIDNEY ENLARGEMENT [None]
  - MUSCULAR WEAKNESS [None]
  - MYALGIA [None]
  - PAIN [None]
  - RENAL FAILURE [None]
  - SKIN DISORDER [None]
  - TRANSPLANT REJECTION [None]
  - TREATMENT NONCOMPLIANCE [None]
